FAERS Safety Report 19813710 (Version 1)
Quarter: 2021Q3

REPORT INFORMATION
  Report Type: Spontaneous
  Country: US (occurrence: US)
  Receive Date: 20210907
  Receipt Date: 20210907
  Transmission Date: 20211014
  Serious: Yes (Hospitalization)
  Sender: FDA-Public Use
  Company Number: None

PATIENT
  Age: 40 Year
  Sex: Male

DRUGS (1)
  1. GLEOSTINE [Suspect]
     Active Substance: LOMUSTINE
     Indication: BRAIN NEOPLASM MALIGNANT
     Dosage: ?          OTHER DOSE:2 CAPS ? 1 DOSE;?
     Route: 048
     Dates: start: 20210203

REACTIONS (1)
  - Fall [None]

NARRATIVE: CASE EVENT DATE: 20210902
